FAERS Safety Report 25360165 (Version 2)
Quarter: 2025Q2

REPORT INFORMATION
  Report Type: Report from Study
  Country: CA (occurrence: CA)
  Receive Date: 20250527
  Receipt Date: 20250605
  Transmission Date: 20250716
  Serious: Yes (Other)
  Sender: ALEXION PHARMACEUTICALS
  Company Number: CA-AstraZeneca-CH-00876019A

PATIENT
  Age: 43 Year
  Weight: 78.8 kg

DRUGS (4)
  1. CAPIVASERTIB [Suspect]
     Active Substance: CAPIVASERTIB
     Indication: Breast cancer metastatic
     Dosage: 320 MILLIGRAM, BID
  2. CAPIVASERTIB [Suspect]
     Active Substance: CAPIVASERTIB
  3. FASLODEX [Suspect]
     Active Substance: FULVESTRANT
     Indication: Breast cancer metastatic
     Dosage: 500 MILLIGRAM, Q3W
  4. FASLODEX [Suspect]
     Active Substance: FULVESTRANT

REACTIONS (15)
  - Liver injury [Recovered/Resolved]
  - Depressed level of consciousness [Recovered/Resolved]
  - Fatigue [Not Recovered/Not Resolved]
  - Diarrhoea [Unknown]
  - Skin disorder [Unknown]
  - COVID-19 [Unknown]
  - Lung opacity [Unknown]
  - Pyrexia [Unknown]
  - Headache [Unknown]
  - Vomiting [Unknown]
  - Hypotension [Recovered/Resolved]
  - Tachycardia [Unknown]
  - White blood cell count increased [Unknown]
  - Oropharyngeal pain [Unknown]
  - Acute kidney injury [Unknown]
